FAERS Safety Report 6027399-7 (Version None)
Quarter: 2009Q1

REPORT INFORMATION
  Report Type: 
  Country: None (occurrence: None)
  Receive Date: 20090102
  Receipt Date: 20090102
  Transmission Date: 20090719
  Serious: Yes (Other)
  Sender: FDA-Public Use
  Company Number: None

PATIENT
  Age: 88 Year
  Sex: Female
  Weight: 72.5755 kg

DRUGS (3)
  1. BUSPIRONE HCL [Suspect]
     Indication: ANXIETY
     Dosage: 10MG  TWICE DAILY PO
     Route: 048
     Dates: start: 20081023, end: 20081222
  2. PAROXETINE HCL [Suspect]
     Indication: ANXIETY
     Dosage: 12.5 ONCE DAILY PO
     Route: 048
     Dates: start: 20081210, end: 20081222
  3. PAROXETINE HCL [Suspect]
     Indication: DEPRESSION
     Dosage: 12.5 ONCE DAILY PO
     Route: 048
     Dates: start: 20081210, end: 20081222

REACTIONS (2)
  - DRUG INEFFECTIVE [None]
  - HALLUCINATION, AUDITORY [None]
